FAERS Safety Report 7288019-7 (Version None)
Quarter: 2011Q1

REPORT INFORMATION
  Report Type: 
  Country: None (occurrence: None)
  Receive Date: 20110211
  Receipt Date: 20110131
  Transmission Date: 20110831
  Serious: Yes (Hospitalization, Other)
  Sender: FDA-Public Use
  Company Number: PHHY2011CA02158

PATIENT
  Sex: Female

DRUGS (2)
  1. COREG [Concomitant]
     Dosage: 18 MG, QD
  2. SANDOSTATIN [Suspect]
     Indication: NEUROENDOCRINE CARCINOMA
     Dosage: 150 UG, TID
     Route: 058
     Dates: start: 20101219

REACTIONS (7)
  - RASH PRURITIC [None]
  - RASH MACULO-PAPULAR [None]
  - ASTHENIA [None]
  - FATIGUE [None]
  - THROMBOSIS [None]
  - BRONCHITIS [None]
  - HYPOTENSION [None]
